FAERS Safety Report 13085470 (Version 1)
Quarter: 2017Q1

REPORT INFORMATION
  Report Type: Spontaneous
  Country: US (occurrence: US)
  Receive Date: 20170104
  Receipt Date: 20170104
  Transmission Date: 20170428
  Serious: No
  Sender: FDA-Public Use
  Company Number: US-PFIZER INC-2016053422

PATIENT
  Age: 60 Year
  Sex: Female

DRUGS (19)
  1. CLONAZEPAM. [Concomitant]
     Active Substance: CLONAZEPAM
     Indication: ANXIETY
     Dosage: 0.5 MG, AS NEEDED (1 TAB HS PRN)
  2. LIDOCAINE-PRILOCAINE [Concomitant]
     Active Substance: LIDOCAINE\PRILOCAINE
     Dosage: UNK [LIDOCAINE: 2.5%]/ [PRILOCAINE: 2.5%]
     Route: 061
  3. PREDNISONE. [Concomitant]
     Active Substance: PREDNISONE
     Dosage: UNK (TAKE 2 TABLETS TODAY, 2 TABLETS TOMORROW, THEN 1 TABLET THE THIRD DAY)
  4. CLOBETASOL 0.05% [Concomitant]
     Active Substance: CLOBETASOL
     Dosage: 0.05 %, 2X/DAY (APPLY A THIN LAYER TO THE AFFECTED AREAS)
     Route: 061
  5. TRAZODONE [Concomitant]
     Active Substance: TRAZODONE HYDROCHLORIDE
     Dosage: 100 MG, 1X/DAY (TAKE 2 TABLETS AT BEDTIME)
     Route: 048
  6. ALLOPURINOL. [Concomitant]
     Active Substance: ALLOPURINOL
     Dosage: 100 MG, 2X/DAY
     Route: 048
  7. ALLOPURINOL. [Concomitant]
     Active Substance: ALLOPURINOL
     Dosage: 300 MG, 1X/DAY
     Route: 048
  8. POLYETHYLENE GLYCOL 3350. [Concomitant]
     Active Substance: POLYETHYLENE GLYCOL 3350
     Dosage: 17 G, 2X/DAY (TAKE 17G IN 8 OZ FLUID TWICE DAILY)
     Route: 048
  9. ZITHROMAX [Concomitant]
     Active Substance: AZITHROMYCIN DIHYDRATE
     Dosage: 250 MG, 1X/DAY
  10. LYRICA [Suspect]
     Active Substance: PREGABALIN
     Dosage: 100 MG, 3X/DAY
     Route: 048
  11. ZITHROMAX [Concomitant]
     Active Substance: AZITHROMYCIN DIHYDRATE
     Dosage: 500 MG, 1X/DAY
     Route: 048
  12. NEXIUM [Concomitant]
     Active Substance: ESOMEPRAZOLE MAGNESIUM
     Indication: GASTRIC DISORDER
     Dosage: 40 MG, 1X/DAY (EACH EVENING)
  13. CYCLOBENZAPRINE [Concomitant]
     Active Substance: CYCLOBENZAPRINE
     Indication: MUSCLE SPASMS
     Dosage: 10 MG, AS NEEDED (TAKE 1 TABLET 3 TIMES A DAY AS NEEDED)
  14. FUROSEMIDE. [Concomitant]
     Active Substance: FUROSEMIDE
     Indication: FLUID RETENTION
     Dosage: UNK UNK, 1X/DAY (TAKE 1 + 1/2 TABLET EVERY MORNING)
     Route: 048
  15. HYDROCODONE- IBUPROFEN [Concomitant]
     Indication: PAIN
     Dosage: 1 DF, AS NEEDED ([HYDROCODONE: 7.5MG]/ [IBUPROFEN: 200 MG])
     Route: 048
  16. IBANDRONATE [Concomitant]
     Active Substance: IBANDRONATE SODIUM
     Dosage: 150 MG, MONTHLY (TAKE 1 TAB ONCE A MONTH ON EMPTY STOMACH WITH 8 OZ OF WATER)
     Route: 048
  17. METOPROLOL TARTRATE. [Concomitant]
     Active Substance: METOPROLOL TARTRATE
     Indication: BLOOD PRESSURE ABNORMAL
     Dosage: 25 MG, 2X/DAY
     Route: 048
  18. PROMETHAZINE [Concomitant]
     Active Substance: PROMETHAZINE\PROMETHAZINE HYDROCHLORIDE
     Indication: NAUSEA
     Dosage: 25 MG, AS NEEDED (TAKE 1 TABLET[S] EVERY 6 HOURS AS NEEDED)
     Route: 048
  19. SIMVASTATIN. [Concomitant]
     Active Substance: SIMVASTATIN
     Indication: BLOOD CHOLESTEROL ABNORMAL
     Dosage: 40 MG, 1X/DAY (1 TAB Q PM)

REACTIONS (1)
  - Pain [Unknown]
